FAERS Safety Report 23029506 (Version 4)
Quarter: 2024Q3

REPORT INFORMATION
  Report Type: Spontaneous
  Country: US (occurrence: US)
  Receive Date: 20231004
  Receipt Date: 20240926
  Transmission Date: 20241017
  Serious: No
  Sender: MERCK
  Company Number: US-009507513-2309USA009723

PATIENT
  Sex: Female
  Weight: 40.816 kg

DRUGS (1)
  1. KEYTRUDA [Suspect]
     Active Substance: PEMBROLIZUMAB
     Indication: Transitional cell carcinoma metastatic
     Dosage: UNK, Q3W
     Route: 042
     Dates: start: 202304

REACTIONS (3)
  - Hair colour changes [Unknown]
  - Adverse event [Recovered/Resolved]
  - Therapeutic response unexpected [Unknown]
